FAERS Safety Report 12407699 (Version 1)
Quarter: 2016Q2

REPORT INFORMATION
  Report Type: Spontaneous
  Country: JP (occurrence: JP)
  Receive Date: 20160526
  Receipt Date: 20160526
  Transmission Date: 20160815
  Serious: Yes (Other)
  Sender: FDA-Public Use
  Company Number: JP-CIPLA LTD.-2016JP05414

PATIENT

DRUGS (1)
  1. GEMCITABINE [Suspect]
     Active Substance: GEMCITABINE\GEMCITABINE HYDROCHLORIDE
     Indication: PANCREATIC CARCINOMA
     Dosage: 400 OR 700 OR 1000 MG/M2, 30-MINUTE INTRAVENOUS INFUSION ON DAYS 1, 8, AND 15

REACTIONS (2)
  - Jaundice cholestatic [Unknown]
  - General physical health deterioration [Unknown]
